FAERS Safety Report 25381702 (Version 1)
Quarter: 2025Q2

REPORT INFORMATION
  Report Type: Spontaneous
  Country: CN (occurrence: CN)
  Receive Date: 20250531
  Receipt Date: 20250531
  Transmission Date: 20250717
  Serious: Yes (Other)
  Sender: BEIGENE
  Company Number: CN-BEIGENE-BGN-2025-008389

PATIENT
  Age: 56 Year
  Weight: 69 kg

DRUGS (24)
  1. TISLELIZUMAB [Suspect]
     Active Substance: TISLELIZUMAB
     Indication: Oesophageal carcinoma
  2. TISLELIZUMAB [Suspect]
     Active Substance: TISLELIZUMAB
     Route: 041
  3. TISLELIZUMAB [Suspect]
     Active Substance: TISLELIZUMAB
     Route: 041
  4. TISLELIZUMAB [Suspect]
     Active Substance: TISLELIZUMAB
  5. DOCETAXEL [Suspect]
     Active Substance: DOCETAXEL
     Indication: Oesophageal carcinoma
  6. DOCETAXEL [Suspect]
     Active Substance: DOCETAXEL
     Route: 041
  7. DOCETAXEL [Suspect]
     Active Substance: DOCETAXEL
     Route: 041
  8. DOCETAXEL [Suspect]
     Active Substance: DOCETAXEL
  9. CISPLATIN [Suspect]
     Active Substance: CISPLATIN
     Indication: Oesophageal carcinoma
  10. CISPLATIN [Suspect]
     Active Substance: CISPLATIN
  11. CISPLATIN [Suspect]
     Active Substance: CISPLATIN
     Route: 041
  12. CISPLATIN [Suspect]
     Active Substance: CISPLATIN
     Route: 041
  13. CISPLATIN [Suspect]
     Active Substance: CISPLATIN
  14. CISPLATIN [Suspect]
     Active Substance: CISPLATIN
  15. CISPLATIN [Suspect]
     Active Substance: CISPLATIN
     Route: 041
  16. CISPLATIN [Suspect]
     Active Substance: CISPLATIN
     Route: 041
  17. SODIUM CHLORIDE [Concomitant]
     Active Substance: SODIUM CHLORIDE
     Indication: Vehicle solution use
  18. SODIUM CHLORIDE [Concomitant]
     Active Substance: SODIUM CHLORIDE
     Route: 041
  19. SODIUM CHLORIDE [Concomitant]
     Active Substance: SODIUM CHLORIDE
  20. SODIUM CHLORIDE [Concomitant]
     Active Substance: SODIUM CHLORIDE
     Route: 041
  21. SODIUM CHLORIDE [Concomitant]
     Active Substance: SODIUM CHLORIDE
  22. SODIUM CHLORIDE [Concomitant]
     Active Substance: SODIUM CHLORIDE
     Route: 041
  23. SODIUM CHLORIDE [Concomitant]
     Active Substance: SODIUM CHLORIDE
  24. SODIUM CHLORIDE [Concomitant]
     Active Substance: SODIUM CHLORIDE
     Route: 041

REACTIONS (1)
  - Myelosuppression [Unknown]
